FAERS Safety Report 9519287 (Version 1)
Quarter: 2013Q3

REPORT INFORMATION
  Report Type: Report from Study
  Country: US (occurrence: US)
  Receive Date: 20130912
  Receipt Date: 20130912
  Transmission Date: 20140515
  Serious: Yes (Hospitalization, Other)
  Sender: FDA-Public Use
  Company Number: US-ABBOTT-13P-163-1143714-00

PATIENT
  Age: 76 Year
  Sex: Male
  Weight: 81.72 kg

DRUGS (7)
  1. HUMIRA [Suspect]
     Indication: RHEUMATOID ARTHRITIS
     Route: 058
     Dates: start: 2011, end: 201301
  2. HUMIRA [Suspect]
     Route: 058
     Dates: start: 201308
  3. FELODIPINE [Concomitant]
     Indication: HYPERTENSION
  4. SIMVASTATIN [Concomitant]
     Indication: BLOOD CHOLESTEROL INCREASED
  5. TAMSULOSIN [Concomitant]
     Indication: PROSTATOMEGALY
  6. BABY ASPIRIN [Concomitant]
     Indication: ANTICOAGULANT THERAPY
  7. ATENOLOL [Concomitant]
     Indication: HYPERTENSION

REACTIONS (2)
  - Aortic aneurysm [Recovered/Resolved]
  - Cardiac infection [Recovered/Resolved]
